FAERS Safety Report 19070941 (Version 1)
Quarter: 2021Q1

REPORT INFORMATION
  Report Type: Spontaneous
  Country: QA (occurrence: QA)
  Receive Date: 20210330
  Receipt Date: 20210330
  Transmission Date: 20210420
  Serious: Yes (Death, Hospitalization, Other)
  Sender: FDA-Public Use
  Company Number: QA-LUPIN PHARMACEUTICALS INC.-2021-03823

PATIENT
  Age: 60 Year
  Sex: Male

DRUGS (5)
  1. HYDROCORTISONE. [Suspect]
     Active Substance: HYDROCORTISONE
     Indication: COVID-19
     Dosage: UNK
     Route: 065
  2. TOCILIZUMAB. [Suspect]
     Active Substance: TOCILIZUMAB
     Indication: COVID-19
     Dosage: 400 MILLIGRAM, AT FIRST DOSE
     Route: 065
  3. TOCILIZUMAB. [Suspect]
     Active Substance: TOCILIZUMAB
     Dosage: 600 MILLIGRAM, AT SECOND AND THIRD DOSE
     Route: 065
  4. METHYLPREDNISOLONE. [Suspect]
     Active Substance: METHYLPREDNISOLONE
     Indication: COVID-19
     Dosage: UNK, PATIENT RECEIVED SEVERAL DOSAGES OF METHYLPREDNISOLONE
     Route: 065
  5. TOCILIZUMAB. [Suspect]
     Active Substance: TOCILIZUMAB
     Dosage: 600 MILLIGRAM, AT SECOND AND THIRD DOSE
     Route: 065

REACTIONS (6)
  - Systemic candida [Unknown]
  - Off label use [Fatal]
  - Cryptococcosis [Fatal]
  - Candida infection [Unknown]
  - Sepsis [Fatal]
  - Disseminated cryptococcosis [Fatal]
